FAERS Safety Report 9131927 (Version 2)
Quarter: 2013Q1

REPORT INFORMATION
  Report Type: Spontaneous
  Country: CA (occurrence: CA)
  Receive Date: 20130301
  Receipt Date: 20130320
  Transmission Date: 20140127
  Serious: Yes (Other)
  Sender: FDA-Public Use
  Company Number: PHHY2010CA70992

PATIENT
  Age: 62 Year
  Sex: Male

DRUGS (6)
  1. ACLASTA [Suspect]
     Indication: OSTEOPOROSIS
     Dosage: UNK UKN, UNK
     Route: 042
     Dates: start: 20091218
  2. ACLASTA [Suspect]
     Dosage: UNK UKN, UNK
     Route: 042
     Dates: start: 20110204
  3. ACLASTA [Suspect]
     Dosage: UNK UKN, UNK
     Route: 042
     Dates: start: 20120203
  4. CLONAZEPAM [Concomitant]
     Dosage: 0.5 UKN, QD PM
  5. PANTOLOC [Concomitant]
     Dosage: 40 UKN, QD
  6. DOMPERIDONE [Concomitant]
     Dosage: 10 UKN, TID

REACTIONS (3)
  - Tuberculosis [Unknown]
  - Cough [Unknown]
  - Pyrexia [Unknown]
